FAERS Safety Report 6447925-3 (Version None)
Quarter: 2009Q4

REPORT INFORMATION
  Report Type: 
  Country: None (occurrence: None)
  Receive Date: 20091116
  Receipt Date: 20091030
  Transmission Date: 20100525
  Serious: Yes (Hospitalization)
  Sender: FDA-Public Use
  Company Number: 2009002758

PATIENT
  Age: 76 Year
  Sex: Male
  Weight: 80 kg

DRUGS (8)
  1. ERLOTINIB HYDROCHLORIDE [Suspect]
     Indication: LUNG SQUAMOUS CELL CARCINOMA STAGE UNSPECIFIED
     Dosage: 150 MG, QD, ORAL
     Route: 048
     Dates: start: 20090612, end: 20090620
  2. HARNAL          (TAMSULOSIN HYDROCHLORIDE) [Concomitant]
  3. NITRODERM [Concomitant]
  4. BETAMETHASONE [Concomitant]
  5. OMEPRAZOLE [Concomitant]
  6. POPYRON [Concomitant]
  7. ALLECLOCK [Concomitant]
  8. LEVOFLOXACIN [Concomitant]

REACTIONS (1)
  - C-REACTIVE PROTEIN INCREASED [None]
